FAERS Safety Report 23103604 (Version 3)
Quarter: 2024Q3

REPORT INFORMATION
  Report Type: Spontaneous
  Country: ES (occurrence: ES)
  Receive Date: 20231025
  Receipt Date: 20240715
  Transmission Date: 20241016
  Serious: Yes (Hospitalization)
  Sender: ROCHE
  Company Number: None

PATIENT
  Age: 70 Year
  Sex: Male

DRUGS (10)
  1. RITUXIMAB [Suspect]
     Active Substance: RITUXIMAB
     Indication: Marginal zone lymphoma
     Dosage: 375 MG/M2, 5 CYCLES
     Route: 041
     Dates: start: 20220922
  2. RITUXIMAB [Suspect]
     Active Substance: RITUXIMAB
     Dosage: 645; INTRAVENOUS USE
     Route: 041
     Dates: start: 20230125
  3. RITUXIMAB [Suspect]
     Active Substance: RITUXIMAB
     Dosage: 645; INTRAVENOUS USE
     Route: 042
     Dates: start: 20230112
  4. TAFASITAMAB [Suspect]
     Active Substance: TAFASITAMAB
     Indication: Marginal zone lymphoma
     Dosage: UNK
     Route: 065
     Dates: start: 20220922
  5. TAFASITAMAB [Suspect]
     Active Substance: TAFASITAMAB
     Dosage: UNK
     Route: 065
     Dates: start: 20230125
  6. LENALIDOMIDE [Suspect]
     Active Substance: LENALIDOMIDE
     Indication: Marginal zone lymphoma
     Dosage: 10 MG, QD FOR 12 CYCLES (ON DAYS 1 TO 21)
     Route: 065
     Dates: start: 20220722
  7. LENALIDOMIDE [Suspect]
     Active Substance: LENALIDOMIDE
     Dosage: UNK
     Route: 065
     Dates: start: 20230125
  8. LENALIDOMIDE [Suspect]
     Active Substance: LENALIDOMIDE
     Dosage: 20 MG DAILY (ON DAYS 1 TO 21) FOR 12 CYCLES
     Route: 065
     Dates: start: 20220922
  9. LENALIDOMIDE [Suspect]
     Active Substance: LENALIDOMIDE
     Dosage: 15 MILLIGRAM QD (REDUCED TO 15 MG)
     Route: 065
  10. LENALIDOMIDE [Suspect]
     Active Substance: LENALIDOMIDE
     Route: 065
     Dates: start: 20230201

REACTIONS (3)
  - Intentional product use issue [Unknown]
  - Dyspnoea [Recovered/Resolved]
  - Off label use [Unknown]

NARRATIVE: CASE EVENT DATE: 20230717
